FAERS Safety Report 18789976 (Version 1)
Quarter: 2021Q1

REPORT INFORMATION
  Report Type: Spontaneous
  Country: CA (occurrence: CA)
  Receive Date: 20210126
  Receipt Date: 20210126
  Transmission Date: 20210419
  Serious: Yes (Hospitalization)
  Sender: FDA-Public Use
  Company Number: CA-PFIZER INC-2021049456

PATIENT
  Age: 73 Year
  Sex: Female

DRUGS (19)
  1. LORAZEPAM. [Concomitant]
     Active Substance: LORAZEPAM
  2. MIDODRINE [Concomitant]
     Active Substance: MIDODRINE
  3. ROSUVASTATIN. [Concomitant]
     Active Substance: ROSUVASTATIN
  4. TRAZODONE [Concomitant]
     Active Substance: TRAZODONE HYDROCHLORIDE
  5. CINACALCET. [Concomitant]
     Active Substance: CINACALCET
  6. CYANOCOBALAMIN. [Concomitant]
     Active Substance: CYANOCOBALAMIN
  7. OLANZAPINE. [Concomitant]
     Active Substance: OLANZAPINE
  8. VITAMIN E [Concomitant]
     Active Substance: .ALPHA.-TOCOPHEROL
  9. DOMPERIDONE [Concomitant]
     Active Substance: DOMPERIDONE
  10. METHOTRIMEPRAZINE [LEVOMEPROMAZINE] [Concomitant]
     Active Substance: LEVOMEPROMAZINE
  11. TUMS [Concomitant]
     Active Substance: CALCIUM CARBONATE
  12. GABAPENTIN. [Suspect]
     Active Substance: GABAPENTIN
     Indication: RESTLESS LEGS SYNDROME
     Dosage: 100 MG 1 EVERY 1 DAY
  13. CITALOPRAM [Concomitant]
     Active Substance: CITALOPRAM HYDROBROMIDE
  14. RABEPRAZOLE [Concomitant]
     Active Substance: RABEPRAZOLE
  15. SEVELAMER [Concomitant]
     Active Substance: SEVELAMER
  16. FRAGMIN [Concomitant]
     Active Substance: DALTEPARIN SODIUM
  17. PRAMIPEXOLE. [Concomitant]
     Active Substance: PRAMIPEXOLE
  18. VENOFER [Concomitant]
     Active Substance: IRON SUCROSE
  19. SYNTHROID [Concomitant]
     Active Substance: LEVOTHYROXINE SODIUM

REACTIONS (10)
  - Acidosis [Unknown]
  - Periorbital oedema [Unknown]
  - Off label use [Unknown]
  - Ataxia [Unknown]
  - Metabolic encephalopathy [Unknown]
  - Respiratory failure [Unknown]
  - Depressed level of consciousness [Unknown]
  - Hypotension [Unknown]
  - Confusional state [Unknown]
  - Fluid overload [Unknown]
